FAERS Safety Report 13656233 (Version 2)
Quarter: 2017Q2

REPORT INFORMATION
  Report Type: Spontaneous
  Country: US (occurrence: US)
  Receive Date: 20170615
  Receipt Date: 20170623
  Transmission Date: 20170830
  Serious: No
  Sender: FDA-Public Use
  Company Number: US-BAYER-2017-113970

PATIENT
  Age: 48 Year
  Sex: Male
  Weight: 63.49 kg

DRUGS (1)
  1. ALEVE [Suspect]
     Active Substance: NAPROXEN SODIUM
     Indication: ARTHRITIS
     Dosage: 6 DF, QD
     Route: 048

REACTIONS (5)
  - Incorrect dosage administered [None]
  - Incorrect drug administration duration [Unknown]
  - Product use in unapproved indication [None]
  - Incorrect dosage administered [Unknown]
  - Product contamination physical [None]
